FAERS Safety Report 7455737-7 (Version None)
Quarter: 2011Q2

REPORT INFORMATION
  Report Type: 
  Country: None (occurrence: None)
  Receive Date: 20110503
  Receipt Date: 20110419
  Transmission Date: 20111010
  Serious: Yes (Hospitalization)
  Sender: FDA-Public Use
  Company Number: DE-WATSON-2011-03924

PATIENT
  Age: 42 Year
  Sex: Female
  Weight: 69 kg

DRUGS (1)
  1. PENTOXIFYLLINE (WATSON LABORATORIES) [Suspect]
     Indication: SUICIDAL IDEATION
     Dosage: 20 G, SINGLE
     Route: 048

REACTIONS (3)
  - METABOLIC ACIDOSIS [None]
  - COMA [None]
  - INTENTIONAL OVERDOSE [None]
